FAERS Safety Report 24765208 (Version 1)
Quarter: 2024Q4

REPORT INFORMATION
  Report Type: Spontaneous
  Country: US (occurrence: US)
  Receive Date: 20241223
  Receipt Date: 20241223
  Transmission Date: 20250115
  Serious: Yes (Other)
  Sender: Unknown Manufacturer
  Company Number: US-KOANAAP-SML-US-2024-01237

PATIENT

DRUGS (2)
  1. DOCETAXEL [Suspect]
     Active Substance: DOCETAXEL
     Indication: Bladder transitional cell carcinoma
     Dosage: DOCETAXEL 37.5MGDISSOLVED IN 50ML OF SODIUM-CHLORIDE [NORMAL-SALINE] SOLUTION FOR 90-120 MINUTES
     Route: 041
  2. GEMCITABINE [Suspect]
     Active Substance: GEMCITABINE
     Indication: Bladder transitional cell carcinoma
     Dosage: GEMCITABINE 1G DISSOLVED IN UNSPECIFIED SOLVENT FOR 90 MINUTES ONCE WEEK FOR SIX WEEKS

REACTIONS (2)
  - Haematuria [Unknown]
  - Bladder pain [Unknown]
